FAERS Safety Report 9868584 (Version 2)
Quarter: 2014Q1

REPORT INFORMATION
  Report Type: Spontaneous
  Country: GB (occurrence: GB)
  Receive Date: 20140204
  Receipt Date: 20140204
  Transmission Date: 20141002
  Serious: Yes (Life-Threatening, Hospitalization)
  Sender: FDA-Public Use
  Company Number: GB-WATSON-2012-01289

PATIENT
  Age: 27 Year
  Sex: Male
  Weight: 79 kg

DRUGS (15)
  1. TOPIRAMATE (UNKNOWN) [Suspect]
     Indication: PRODUCT USED FOR UNKNOWN INDICATION
     Dosage: UNK
     Route: 065
     Dates: start: 20131227
  2. TOPIRAMATE (UNKNOWN) [Suspect]
     Dosage: UNK
     Route: 065
     Dates: start: 20120116
  3. TOPIRAMATE (UNKNOWN) [Suspect]
     Dosage: UNK
     Route: 065
     Dates: start: 20120104, end: 20120105
  4. TOPIRAMATE (UNKNOWN) [Suspect]
     Dosage: UNK
     Route: 065
     Dates: start: 20111212, end: 20111213
  5. GABAPENTIN [Concomitant]
     Indication: PRODUCT USED FOR UNKNOWN INDICATION
     Dosage: UNK
     Route: 065
     Dates: start: 20111003, end: 20111222
  6. OMEPRAZOLE [Concomitant]
     Indication: PRODUCT USED FOR UNKNOWN INDICATION
     Dosage: UNK
     Route: 065
     Dates: start: 20111027, end: 20111222
  7. OMEPRAZOLE [Concomitant]
     Dosage: UNK
     Route: 065
     Dates: start: 20120104
  8. OMEPRAZOLE [Concomitant]
     Dosage: UNK
     Route: 065
     Dates: start: 20130920, end: 20131231
  9. NAPROXEN [Concomitant]
     Indication: PRODUCT USED FOR UNKNOWN INDICATION
     Dosage: UNK
     Route: 065
     Dates: start: 20111115, end: 20111213
  10. NAPROXEN [Concomitant]
     Dosage: UNK
     Route: 065
     Dates: start: 20131227
  11. DICLOFENAC SODIUM [Concomitant]
     Indication: PRODUCT USED FOR UNKNOWN INDICATION
     Dosage: UNK
     Route: 065
     Dates: start: 20131125, end: 20131209
  12. FLUTICASONE PROPIONATE [Concomitant]
     Indication: PRODUCT USED FOR UNKNOWN INDICATION
     Dosage: UNK
     Route: 065
     Dates: start: 20130927, end: 20131004
  13. LAMOTRIGINE [Concomitant]
     Indication: PRODUCT USED FOR UNKNOWN INDICATION
     Dosage: UNK
     Route: 065
     Dates: start: 20130927
  14. PREGABALIN [Concomitant]
     Indication: PRODUCT USED FOR UNKNOWN INDICATION
     Dosage: UNK
     Route: 065
     Dates: start: 20130816
  15. ZOPICLONE [Concomitant]
     Indication: PRODUCT USED FOR UNKNOWN INDICATION
     Dosage: UNK
     Route: 065
     Dates: start: 20130920, end: 20131018

REACTIONS (5)
  - Bipolar I disorder [Not Recovered/Not Resolved]
  - Suicide attempt [Unknown]
  - Aggression [Unknown]
  - Mood altered [Unknown]
  - Intentional overdose [Unknown]
